FAERS Safety Report 21641862 (Version 7)
Quarter: 2025Q2

REPORT INFORMATION
  Report Type: Report from Study
  Country: FR (occurrence: FR)
  Receive Date: 20221125
  Receipt Date: 20250616
  Transmission Date: 20250717
  Serious: Yes (Other)
  Sender: TAKEDA
  Company Number: FR-TAKEDA-2022TUS087815

PATIENT
  Age: 74 Year
  Sex: Female

DRUGS (30)
  1. TEDUGLUTIDE [Suspect]
     Active Substance: TEDUGLUTIDE
     Indication: Short-bowel syndrome
     Dosage: 2.3 MILLIGRAM, QD
     Dates: start: 20200622, end: 20220501
  2. TEDUGLUTIDE [Suspect]
     Active Substance: TEDUGLUTIDE
  3. TEDUGLUTIDE [Suspect]
     Active Substance: TEDUGLUTIDE
  4. TEDUGLUTIDE [Suspect]
     Active Substance: TEDUGLUTIDE
  5. ASCORBIC ACID [Concomitant]
     Active Substance: ASCORBIC ACID
     Indication: Vitamin C deficiency
     Dosage: 1000 MILLIGRAM, 3/WEEK
     Dates: start: 20220404
  6. ALUMINUM HYDROXIDE\ALUMINUM PHOSPHATE\GUAR GUM\MAGNESIUM HYDROXIDE [Concomitant]
     Active Substance: ALUMINUM HYDROXIDE\ALUMINUM PHOSPHATE\GUAR GUM\MAGNESIUM HYDROXIDE
     Indication: Prophylaxis
     Dosage: UNK UNK, TID
     Dates: start: 20220404
  7. DOMPERIDONE [Concomitant]
     Active Substance: DOMPERIDONE
     Indication: Vomiting
     Dosage: 10 MILLIGRAM, TID
     Dates: start: 20220404
  8. DOMPERIDONE [Concomitant]
     Active Substance: DOMPERIDONE
     Indication: Nausea
  9. RABEPRAZOLE [Concomitant]
     Active Substance: RABEPRAZOLE
     Indication: Prophylaxis
     Dosage: 20 MILLIGRAM, QD
     Dates: start: 20220404
  10. MUPIROCIN [Concomitant]
     Active Substance: MUPIROCIN
     Indication: Fungal skin infection
     Route: 061
  11. APIXABAN [Concomitant]
     Active Substance: APIXABAN
     Indication: Anticoagulant therapy
     Dosage: 5 MILLIGRAM, BID
     Dates: start: 202403
  12. BISOPROLOL [Concomitant]
     Active Substance: BISOPROLOL
     Indication: Arrhythmia
     Dosage: 3.75 MILLIGRAM, QD
     Dates: start: 202311, end: 20240322
  13. BISOPROLOL [Concomitant]
     Active Substance: BISOPROLOL
     Indication: Tachycardia
     Dosage: 2.5 MILLIGRAM, QD
     Dates: start: 20240925
  14. SOTALOL [Concomitant]
     Active Substance: SOTALOL
     Indication: Tachycardia
     Dosage: 80 MILLIGRAM, BID
     Dates: start: 20240322, end: 20240923
  15. AMIODARONE [Concomitant]
     Active Substance: AMIODARONE
     Indication: Tachycardia
     Dosage: 200 MILLIGRAM, BID
     Dates: start: 20240923, end: 20240930
  16. AMIODARONE [Concomitant]
     Active Substance: AMIODARONE
     Indication: Arrhythmia
     Dosage: 200 MILLIGRAM, QD
     Dates: start: 20241001
  17. LEVOTHYROXINE [Concomitant]
     Active Substance: LEVOTHYROXINE
     Indication: Hypothyroidism
     Dosage: 125 MICROGRAM, QD
  18. SMECTA [Concomitant]
     Active Substance: MONTMORILLONITE
     Indication: Short-bowel syndrome
     Dosage: 3 INTERNATIONAL UNIT, TID
     Dates: end: 2021
  19. RACECADOTRIL [Concomitant]
     Active Substance: RACECADOTRIL
     Indication: Short-bowel syndrome
  20. LOPERAMIDE [Concomitant]
     Active Substance: LOPERAMIDE
     Indication: Short-bowel syndrome
     Dosage: UNK UNK, TID
  21. Spasfon [Concomitant]
     Indication: Abdominal pain
  22. GENTAMICIN [Concomitant]
     Active Substance: GENTAMICIN
     Indication: Prophylaxis
     Dosage: 80 MILLIGRAM, QD
     Dates: start: 20201023, end: 20201102
  23. FLAGYL ER [Concomitant]
     Active Substance: METRONIDAZOLE
     Indication: Prophylaxis
     Dates: start: 20201215, end: 20210104
  24. DOXYCYCLINE [Concomitant]
     Active Substance: DOXYCYCLINE
     Indication: Prophylaxis
  25. CHOLECALCIFEROL [Concomitant]
     Active Substance: CHOLECALCIFEROL
     Indication: Vitamin D deficiency
     Dosage: UNK UNK, MONTHLY
     Dates: start: 20210105
  26. VITAMIN B12 [Concomitant]
     Active Substance: CYANOCOBALAMIN
     Indication: Vitamin B12 deficiency
     Dosage: 1000 MICROGRAM, 1/WEEK
     Dates: start: 20210105
  27. PANTOPRAZOLE [Concomitant]
     Active Substance: PANTOPRAZOLE
     Indication: Short-bowel syndrome
     Dosage: 20 MILLIGRAM, QD
     Dates: start: 2021
  28. POTASSIUM [Concomitant]
     Active Substance: POTASSIUM
     Indication: Hypokalaemia
     Dosage: 3 INTERNATIONAL UNIT, QD
     Dates: start: 2021
  29. FUROSEMIDE [Concomitant]
     Active Substance: FUROSEMIDE
     Indication: Hypertension
     Dosage: 40 MILLIGRAM, QD
     Dates: end: 202111
  30. FUROSEMIDE [Concomitant]
     Active Substance: FUROSEMIDE
     Dosage: 60 MILLIGRAM, QD
     Dates: start: 202111

REACTIONS (3)
  - Polymyalgia rheumatica [Not Recovered/Not Resolved]
  - Stoma site discharge [Recovered/Resolved]
  - Fall [Recovered/Resolved]

NARRATIVE: CASE EVENT DATE: 20220201
